FAERS Safety Report 8981512 (Version 2)
Quarter: 2013Q1

REPORT INFORMATION
  Report Type: Spontaneous
  Country: CO (occurrence: CO)
  Receive Date: 20121221
  Receipt Date: 20130319
  Transmission Date: 20140127
  Serious: Yes (Hospitalization, Disabling, Other)
  Sender: FDA-Public Use
  Company Number: CO-AMGEN-COLSP2012056217

PATIENT
  Age: 82 Year
  Sex: Female

DRUGS (4)
  1. ENBREL [Suspect]
     Indication: RHEUMATOID ARTHRITIS
     Dosage: 50 MG, WEEKLY
     Route: 058
     Dates: start: 2010, end: 20121122
  2. NAPROXEN [Concomitant]
     Indication: PAIN
     Dosage: 250 MG, 1X/DAY
     Route: 048
     Dates: start: 2007
  3. NAPROXEN [Concomitant]
     Indication: RHEUMATOID ARTHRITIS
  4. ACETAMINOPHEN [Concomitant]
     Indication: PAIN
     Dosage: UNK,ONCE DAILY
     Route: 048
     Dates: start: 2007

REACTIONS (10)
  - Gallbladder disorder [Recovered/Resolved]
  - Tachycardia [Unknown]
  - Gait disturbance [Not Recovered/Not Resolved]
  - Wheelchair user [Not Recovered/Not Resolved]
  - Back pain [Not Recovered/Not Resolved]
  - Kidney infection [Recovered/Resolved]
  - Arthralgia [Not Recovered/Not Resolved]
  - Discomfort [Not Recovered/Not Resolved]
  - Pain [Not Recovered/Not Resolved]
  - Influenza [Recovered/Resolved]
